FAERS Safety Report 13304481 (Version 2)
Quarter: 2017Q1

REPORT INFORMATION
  Report Type: Spontaneous
  Country: US (occurrence: US)
  Receive Date: 20170308
  Receipt Date: 20170323
  Transmission Date: 20170428
  Serious: Yes (Hospitalization)
  Sender: FDA-Public Use
  Company Number: US-ACCORD-048753

PATIENT
  Age: 64 Year
  Sex: Female
  Weight: 55.34 kg

DRUGS (1)
  1. MITOMYCIN. [Suspect]
     Active Substance: MITOMYCIN
     Indication: BLADDER CANCER
     Dosage: STRENGTH: 5 MG
     Dates: start: 20170123, end: 20170123

REACTIONS (9)
  - Weight decreased [Unknown]
  - Nausea [Unknown]
  - Bladder perforation [Unknown]
  - Dysgeusia [Unknown]
  - Alopecia [Unknown]
  - Food aversion [Unknown]
  - Vomiting [Unknown]
  - Flatulence [Unknown]
  - Dehydration [Unknown]

NARRATIVE: CASE EVENT DATE: 20170123
